FAERS Safety Report 20599202 (Version 4)
Quarter: 2025Q3

REPORT INFORMATION
  Report Type: Spontaneous
  Country: US (occurrence: US)
  Receive Date: 20220315
  Receipt Date: 20250930
  Transmission Date: 20251020
  Serious: No
  Sender: SANOFI AVENTIS
  Company Number: US-SA-SAC20220310002168

PATIENT
  Age: 49 Year
  Sex: Male

DRUGS (1)
  1. KEVZARA [Suspect]
     Active Substance: SARILUMAB
     Indication: Rheumatoid arthritis
     Dosage: 200 MG, QOW
     Route: 058
     Dates: start: 202201

REACTIONS (10)
  - Abdominal pain upper [Unknown]
  - Pain [Unknown]
  - Activities of daily living decreased [Unknown]
  - Mobility decreased [Unknown]
  - Gait disturbance [Unknown]
  - Injection site pain [Unknown]
  - Device mechanical issue [Unknown]
  - Inappropriate schedule of product administration [Unknown]
  - Accidental exposure to product [Unknown]
  - Exposure via skin contact [Unknown]

NARRATIVE: CASE EVENT DATE: 20241106
